FAERS Safety Report 22965571 (Version 2)
Quarter: 2023Q4

REPORT INFORMATION
  Report Type: Report from Study
  Country: MX (occurrence: MX)
  Receive Date: 20230921
  Receipt Date: 20231018
  Transmission Date: 20240109
  Serious: Yes (Hospitalization)
  Sender: FDA-Public Use
  Company Number: MX-002147023-NVSC2023MX201821

PATIENT
  Sex: Female

DRUGS (3)
  1. KISQALI [Suspect]
     Active Substance: RIBOCICLIB
     Indication: Breast cancer
     Dosage: UNK
     Route: 048
  2. KISQALI [Suspect]
     Active Substance: RIBOCICLIB
     Dosage: UNK
     Route: 048
     Dates: start: 20230915
  3. LETROZOLE [Suspect]
     Active Substance: LETROZOLE
     Indication: Product used for unknown indication
     Dosage: (1 LETROZOLE AND THE OTHER 3 PILLS)
     Route: 065

REACTIONS (13)
  - Dehydration [Unknown]
  - Throat tightness [Unknown]
  - Eating disorder [Unknown]
  - Feeling abnormal [Unknown]
  - Dysstasia [Unknown]
  - Renal disorder [Unknown]
  - Uterine leiomyoma [Unknown]
  - Hypersensitivity [Unknown]
  - Urinary tract infection [Unknown]
  - Anaemia [Unknown]
  - Asthenia [Unknown]
  - Malaise [Unknown]
  - Insomnia [Unknown]
